FAERS Safety Report 10019741 (Version 1)
Quarter: 2014Q1

REPORT INFORMATION
  Report Type: Spontaneous
  Country: US (occurrence: US)
  Receive Date: 20140318
  Receipt Date: 20140318
  Transmission Date: 20141002
  Serious: No
  Sender: FDA-Public Use
  Company Number: US-GALDERMA-US14000126

PATIENT
  Age: 58 Year
  Sex: Male

DRUGS (4)
  1. MIRVASO (BRIMONIDINE) TOPICAL GEL, 0.33% [Suspect]
     Indication: ERYTHEMA
     Dosage: 0.33%
     Route: 061
     Dates: start: 20131110, end: 20131111
  2. MIRVASO (BRIMONIDINE) TOPICAL GEL, 0.33% [Suspect]
     Indication: ROSACEA
  3. DOXYCYCLINE [Concomitant]
     Dosage: 100 MG
     Route: 048
     Dates: start: 20130310
  4. METRONIDAZOLE (METRONIDAZOLE) [Concomitant]
     Dosage: 0.75
     Dates: start: 20130310

REACTIONS (2)
  - Pallor [Recovered/Resolved]
  - Erythema [Recovered/Resolved]
